FAERS Safety Report 4459111-7 (Version None)
Quarter: 2004Q3

REPORT INFORMATION
  Report Type: 
  Country: None (occurrence: None)
  Receive Date: 20040922
  Receipt Date: 20040922
  Transmission Date: 20050211
  Serious: Yes (Death)
  Sender: FDA-Public Use
  Company Number: None

PATIENT
  Age: 76 Year
  Sex: Female
  Weight: 72.7 kg

DRUGS (5)
  1. IRINOTECAN [Suspect]
     Indication: SMALL CELL LUNG CANCER STAGE UNSPECIFIED
     Dosage: 87 MG IV DAYS 1 AND 8 PER CYCLE
     Route: 042
     Dates: start: 20040825
  2. IRINOTECAN [Suspect]
     Indication: SMALL CELL LUNG CANCER STAGE UNSPECIFIED
     Dosage: 87 MG IV DAYS 1 AND 8 PER CYCLE
     Route: 042
     Dates: start: 20040901
  3. CISPLATIN [Suspect]
     Indication: SMALL CELL LUNG CANCER STAGE UNSPECIFIED
     Dosage: 35 MG IV DAYS 1 AND 8 PER CYCLE
     Route: 042
     Dates: start: 20040825
  4. CISPLATIN [Suspect]
     Indication: SMALL CELL LUNG CANCER STAGE UNSPECIFIED
     Dosage: 35 MG IV DAYS 1 AND 8 PER CYCLE
     Route: 042
     Dates: start: 20040901
  5. ETOPOSIDE [Suspect]
     Indication: SMALL CELL LUNG CANCER STAGE UNSPECIFIED
     Dosage: 150MG  PO DAYS 3 AND 10 OF EACH CYCLE
     Route: 048
     Dates: start: 20040827, end: 20040903

REACTIONS (10)
  - ANOREXIA [None]
  - ASTHENIA [None]
  - ATRIAL FIBRILLATION [None]
  - CEREBROVASCULAR ACCIDENT [None]
  - DEHYDRATION [None]
  - FATIGUE [None]
  - HYPOVOLAEMIA [None]
  - MARKEDLY REDUCED DIETARY INTAKE [None]
  - NEUTROPENIA [None]
  - UPPER GASTROINTESTINAL HAEMORRHAGE [None]
